FAERS Safety Report 5442824-8 (Version None)
Quarter: 2007Q3

REPORT INFORMATION
  Report Type: 
  Country: None (occurrence: None)
  Receive Date: 20070904
  Receipt Date: 20070827
  Transmission Date: 20080115
  Serious: Yes (Hospitalization, Other)
  Sender: FDA-Public Use
  Company Number: JP-MERCK-0708USA04635

PATIENT
  Age: 29 Year
  Sex: Male

DRUGS (6)
  1. PRIMAXIN [Suspect]
     Indication: BACTERIAL INFECTION
     Route: 042
  2. ERYTHROMYCIN [Suspect]
     Indication: TUBERCULOSIS
     Route: 065
  3. ISONIAZID [Suspect]
     Indication: TUBERCULOSIS
     Route: 065
  4. FLUCONAZOLE [Suspect]
     Indication: FUNGAL INFECTION
     Route: 065
  5. GANCICLOVIR [Suspect]
     Indication: CYTOMEGALOVIRUS INFECTION
     Route: 065
  6. PENTAMIDINE ISETHIONATE [Suspect]
     Indication: PNEUMOCYSTIS JIROVECI PNEUMONIA
     Route: 051

REACTIONS (10)
  - CLOSTRIDIAL INFECTION [None]
  - DIABETES MELLITUS [None]
  - METABOLIC ACIDOSIS [None]
  - RASH [None]
  - RENAL FAILURE [None]
  - RENAL IMPAIRMENT [None]
  - RENAL TUBULAR NECROSIS [None]
  - RESPIRATORY ACIDOSIS [None]
  - RESPIRATORY FAILURE [None]
  - SEPSIS [None]
